FAERS Safety Report 6956043-7 (Version None)
Quarter: 2010Q3

REPORT INFORMATION
  Report Type: 
  Country: None (occurrence: None)
  Receive Date: 20100830
  Receipt Date: 20100819
  Transmission Date: 20110219
  Serious: Yes (Other)
  Sender: FDA-Public Use
  Company Number: GXKR2010US09322

PATIENT
  Age: 22 Year
  Sex: Male

DRUGS (4)
  1. CARBAMAZEPINE [Suspect]
     Indication: CONVULSION
     Route: 065
  2. VALPROIC ACID [Suspect]
     Indication: CONVULSION
     Route: 065
  3. ETHOSUXIMIDE [Suspect]
     Indication: CONVULSION
     Route: 065
  4. PHENOBARBITAL [Suspect]
     Indication: CONVULSION
     Route: 065

REACTIONS (2)
  - HEPATIC ADENOMA [None]
  - SURGERY [None]
